FAERS Safety Report 12674219 (Version 2)
Quarter: 2017Q2

REPORT INFORMATION
  Report Type: Spontaneous
  Country: US (occurrence: US)
  Receive Date: 20160822
  Receipt Date: 20170531
  Transmission Date: 20170830
  Serious: Yes (Hospitalization, Other)
  Sender: FDA-Public Use
  Company Number: US-GLAXOSMITHKLINE-US2016GSK120399

PATIENT
  Age: 58 Year

DRUGS (2)
  1. GAMMAGARD LIQUID [Interacting]
     Active Substance: HUMAN IMMUNOGLOBULIN G
     Indication: PRODUCT USED FOR UNKNOWN INDICATION
  2. VALTREX [Suspect]
     Active Substance: VALACYCLOVIR HYDROCHLORIDE
     Indication: PRODUCT USED FOR UNKNOWN INDICATION

REACTIONS (8)
  - Back pain [Unknown]
  - Intestinal obstruction [Unknown]
  - Pneumonia [Unknown]
  - Urinary retention [Unknown]
  - Vomiting [Unknown]
  - Dehydration [Unknown]
  - Drug interaction [Unknown]
  - Migraine [Unknown]

NARRATIVE: CASE EVENT DATE: 20160701
